FAERS Safety Report 5565741-1 (Version None)
Quarter: 2007Q4

REPORT INFORMATION
  Report Type: 
  Country: None (occurrence: None)
  Receive Date: 20071218
  Receipt Date: 20071210
  Transmission Date: 20080405
  Serious: Yes (Disabling)
  Sender: FDA-Public Use
  Company Number: GB-ABBOTT-06P-167-0353453-00

PATIENT
  Age: 45 Year
  Sex: Female
  Weight: 55 kg

DRUGS (2)
  1. CLARITHROMYCIN [Suspect]
     Indication: LOWER RESPIRATORY TRACT INFECTION
     Route: 048
     Dates: start: 20061029, end: 20061031
  2. NARATRIPTAN [Concomitant]
     Indication: MIGRAINE
     Dates: start: 19970730

REACTIONS (4)
  - DIARRHOEA [None]
  - HAEMORRHAGE [None]
  - THROMBOCYTOPENIA [None]
  - VOMITING [None]
